FAERS Safety Report 19021112 (Version 1)
Quarter: 2021Q1

REPORT INFORMATION
  Report Type: Spontaneous
  Country: US (occurrence: US)
  Receive Date: 20210317
  Receipt Date: 20210317
  Transmission Date: 20210420
  Serious: Yes (Other)
  Sender: FDA-Public Use
  Company Number: US-JNJFOC-A-CH2019-194646

PATIENT
  Age: 48 Year
  Sex: Male

DRUGS (7)
  1. EPOPROSTENOL SODIUM. [Suspect]
     Active Substance: EPOPROSTENOL SODIUM
     Indication: HEPARIN-INDUCED THROMBOCYTOPENIA
     Dosage: 15 NG/KG, PER MIN
     Route: 042
     Dates: start: 201901
  2. ARGATROBAN. [Concomitant]
     Active Substance: ARGATROBAN
  3. HEPARIN [Suspect]
     Active Substance: HEPARIN SODIUM
     Indication: VENTRICULAR ASSIST DEVICE INSERTION
     Dosage: PERI?PROCEDURAL HEPARIN UTILIZATION
     Route: 065
  4. HEPARIN [Concomitant]
     Active Substance: HEPARIN SODIUM
     Indication: VENTRICULAR ASSIST DEVICE INSERTION
  5. EPOPROSTENOL SODIUM. [Suspect]
     Active Substance: EPOPROSTENOL SODIUM
     Dosage: 30 NG/KG, PER MIN
     Route: 042
  6. PROTAMINE [Concomitant]
     Active Substance: PROTAMINE
  7. FACTOR VII [Concomitant]
     Active Substance: COAGULATION FACTOR VII HUMAN
     Indication: DISSEMINATED INTRAVASCULAR COAGULATION

REACTIONS (7)
  - Ventricular assist device insertion [Unknown]
  - Heparin-induced thrombocytopenia [Recovering/Resolving]
  - Product use in unapproved indication [Unknown]
  - Disseminated intravascular coagulation [Recovering/Resolving]
  - Transplant evaluation [Unknown]
  - Deep vein thrombosis [Recovering/Resolving]
  - Off label use [Unknown]

NARRATIVE: CASE EVENT DATE: 201901
